FAERS Safety Report 4295946-1 (Version None)
Quarter: 2004Q1

REPORT INFORMATION
  Report Type: 
  Country: None (occurrence: None)
  Receive Date: 20040212
  Receipt Date: 20040204
  Transmission Date: 20041129
  Serious: No
  Sender: FDA-Public Use
  Company Number: 04H-144-0249357-00

PATIENT
  Sex: 0

DRUGS (2)
  1. ETOMIDATE INJECTION (ETOMIDATE) (ETOMIDATE) [Suspect]
     Indication: SEDATION
     Dosage: 0.2 MG/KG, INTRAVENOUS
     Route: 042
  2. OXYGEN [Concomitant]

REACTIONS (1)
  - OXYGEN SATURATION DECREASED [None]
